FAERS Safety Report 8435254-8 (Version None)
Quarter: 2012Q2

REPORT INFORMATION
  Report Type: 
  Country: None (occurrence: None)
  Receive Date: 20120614
  Receipt Date: 20120531
  Transmission Date: 20120825
  Serious: Yes (Other)
  Sender: FDA-Public Use
  Company Number: DE-MYLANLABS-2012S1011377

PATIENT
  Age: 25 Year
  Sex: Female

DRUGS (2)
  1. OPIPRAMOL [Concomitant]
     Indication: DEPRESSION
     Dosage: MAXIMUM DOSE 2*50MG
     Route: 065
     Dates: start: 20080101
  2. CITALOPRAM [Suspect]
     Indication: DEPRESSION
     Dosage: INCREASING DOSES FROM 20MG TO 60MG
     Route: 065
     Dates: start: 20080101

REACTIONS (6)
  - OPTIC NEURITIS [None]
  - HEADACHE [None]
  - PARAESTHESIA [None]
  - DYSAESTHESIA [None]
  - GALACTORRHOEA [None]
  - MYDRIASIS [None]
